FAERS Safety Report 17883326 (Version 1)
Quarter: 2020Q2

REPORT INFORMATION
  Report Type: Report from Study
  Country: US (occurrence: US)
  Receive Date: 20200611
  Receipt Date: 20200611
  Transmission Date: 20200714
  Serious: Yes (Hospitalization)
  Sender: FDA-Public Use
  Company Number: US-BIOGEN-2020BI00882933

PATIENT
  Age: 51 Year
  Sex: Female
  Weight: 69.01 kg

DRUGS (2)
  1. TECFIDERA [Suspect]
     Active Substance: DIMETHYL FUMARATE
     Dosage: MAINTENANCE DOSE
     Route: 048
  2. TECFIDERA [Suspect]
     Active Substance: DIMETHYL FUMARATE
     Indication: MULTIPLE SCLEROSIS
     Dosage: STARTING DOSE
     Route: 048
     Dates: start: 20181009

REACTIONS (9)
  - Affective disorder [Unknown]
  - Hypokalaemia [Unknown]
  - Multiple sclerosis [Unknown]
  - Iron deficiency [Unknown]
  - Anaemia [Unknown]
  - Delusional disorder, unspecified type [Unknown]
  - Major depression [Unknown]
  - Dental caries [Unknown]
  - Gastrooesophageal reflux disease [Unknown]

NARRATIVE: CASE EVENT DATE: 20200228
